FAERS Safety Report 19379261 (Version 1)
Quarter: 2021Q2

REPORT INFORMATION
  Report Type: Report from Study
  Country: CL (occurrence: CL)
  Receive Date: 20210607
  Receipt Date: 20210607
  Transmission Date: 20210717
  Serious: Yes (Hospitalization, Other)
  Sender: FDA-Public Use
  Company Number: CL-UCBSA-2021025842

PATIENT
  Age: 49 Year
  Sex: Male

DRUGS (4)
  1. LEVODOPA/BENSERAZIDE [Concomitant]
     Active Substance: BENSERAZIDE\LEVODOPA
     Indication: PARKINSON^S DISEASE
     Dosage: UNK, 4X/DAY (QID)
     Route: 048
  2. ROTIGOTINE [Suspect]
     Active Substance: ROTIGOTINE
     Dosage: 6 MILLIGRAM, ONCE DAILY (QD)
     Route: 062
     Dates: start: 20210526
  3. ROTIGOTINE [Suspect]
     Active Substance: ROTIGOTINE
     Indication: PARKINSON^S DISEASE
     Dosage: 6 MILLIGRAM, ONCE DAILY (QD)
     Route: 062
     Dates: start: 20190418, end: 20210501
  4. METFORMINA [METFORMIN] [Concomitant]
     Active Substance: METFORMIN HYDROCHLORIDE
     Indication: TYPE 2 DIABETES MELLITUS
     Dosage: 500 MILLIGRAM, 2X/DAY (BID)
     Route: 048

REACTIONS (3)
  - Therapy cessation [Unknown]
  - Postrenal failure [Recovering/Resolving]
  - Coma [Recovered/Resolved]

NARRATIVE: CASE EVENT DATE: 20210501
